FAERS Safety Report 9258396 (Version 1)
Quarter: 2013Q2

REPORT INFORMATION
  Report Type: Spontaneous
  Country: NL (occurrence: NL)
  Receive Date: 20130426
  Receipt Date: 20130426
  Transmission Date: 20140414
  Serious: Yes (Hospitalization, Other)
  Sender: FDA-Public Use
  Company Number: PHHY2013NL029971

PATIENT
  Age: 55 Year
  Sex: Male
  Weight: 76 kg

DRUGS (6)
  1. LEPONEX [Suspect]
     Indication: SCHIZOPHRENIA
     Dosage: 1 DF, QD (225 MG)
     Route: 048
     Dates: start: 2006, end: 20130306
  2. MADOPAR [Concomitant]
     Dosage: 1 DF, QD
     Dates: start: 2012
  3. STALEVO [Concomitant]
     Dosage: 4 DF, QD (CARBIDOPA 0-WATER, ENTACAPON, LEVODOPA 150/37.5/200MG)
     Dates: start: 2012
  4. AMANTADINE [Concomitant]
     Dosage: 3 DF, QD
     Dates: start: 2012
  5. DOMPERDONE [Concomitant]
     Dosage: 3 DF, QD
     Dates: start: 2012
  6. ESOMEPRAZOLE [Concomitant]
     Dosage: 1 DF, QD
     Dates: start: 2012

REACTIONS (3)
  - Febrile neutropenia [Recovered/Resolved]
  - Neutropenia [Recovered/Resolved]
  - Leukopenia [Recovered/Resolved]
